FAERS Safety Report 4824449-8 (Version None)
Quarter: 2005Q4

REPORT INFORMATION
  Report Type: 
  Country: None (occurrence: None)
  Receive Date: 20051108
  Receipt Date: 20051102
  Transmission Date: 20060501
  Serious: Yes (Other)
  Sender: FDA-Public Use
  Company Number: EM2005-0574

PATIENT

DRUGS (2)
  1. PROLEUKIN [Suspect]
     Indication: RENAL CELL CARCINOMA STAGE UNSPECIFIED
  2. GM-CSF (GRANULOCYTE MACROPHAGE COLONY STIM FACTOR) [Suspect]
     Indication: RENAL CELL CARCINOMA STAGE UNSPECIFIED
     Dosage: 125 MCG, SUBCUTAN.
     Route: 058

REACTIONS (3)
  - DRUG TOXICITY [None]
  - HYPOTENSION [None]
  - NEUROTOXICITY [None]
